FAERS Safety Report 23544700 (Version 8)
Quarter: 2024Q2

REPORT INFORMATION
  Report Type: Spontaneous
  Country: US (occurrence: US)
  Receive Date: 20240220
  Receipt Date: 20240529
  Transmission Date: 20240716
  Serious: No
  Sender: FDA-Public Use
  Company Number: US-PFIZER INC-PV202300035979

PATIENT
  Age: 70 Year
  Sex: Female
  Weight: 83.91 kg

DRUGS (1)
  1. ESTRING [Suspect]
     Active Substance: ESTRADIOL
     Indication: Atrophy
     Dosage: ONE RING EVERY 3 MONTHS

REACTIONS (1)
  - Therapeutic product effect decreased [Unknown]
